FAERS Safety Report 7346503-1 (Version None)
Quarter: 2011Q1

REPORT INFORMATION
  Report Type: 
  Country: None (occurrence: None)
  Receive Date: 20110311
  Receipt Date: 20100909
  Transmission Date: 20110831
  Serious: Yes (Hospitalization, Other)
  Sender: FDA-Public Use
  Company Number: US-BAYER-201013043NA

PATIENT
  Sex: Female
  Weight: 88 kg

DRUGS (5)
  1. YASMIN [Suspect]
     Indication: PRODUCT USED FOR UNKNOWN INDICATION
     Route: 048
     Dates: start: 20080101, end: 20080215
  2. VICODIN [Concomitant]
  3. YAZ [Suspect]
     Indication: CONTRACEPTION
     Dosage: UNK
     Route: 048
     Dates: start: 20080101, end: 20080301
  4. DIAZEPAM [Concomitant]
  5. YAZ [Suspect]
     Indication: PREMENSTRUAL SYNDROME

REACTIONS (7)
  - CHEST PAIN [None]
  - HYPOAESTHESIA [None]
  - PULMONARY EMBOLISM [None]
  - SWELLING [None]
  - DYSPNOEA [None]
  - THROMBOSIS [None]
  - HYPERHIDROSIS [None]
